FAERS Safety Report 20931460 (Version 2)
Quarter: 2022Q2

REPORT INFORMATION
  Report Type: Spontaneous
  Country: SK (occurrence: SK)
  Receive Date: 20220608
  Receipt Date: 20220616
  Transmission Date: 20220721
  Serious: Yes (Hospitalization)
  Sender: FDA-Public Use
  Company Number: SK-NOVARTISPH-NVSC2022SK129719

PATIENT
  Age: 22 Year
  Sex: Male

DRUGS (1)
  1. VORICONAZOLE [Suspect]
     Active Substance: VORICONAZOLE
     Indication: Bronchiolitis
     Dosage: UNK
     Route: 065
     Dates: start: 20220217, end: 20220319

REACTIONS (1)
  - Bronchopulmonary aspergillosis [Recovered/Resolved]
